FAERS Safety Report 17638943 (Version 1)
Quarter: 2020Q2

REPORT INFORMATION
  Report Type: Spontaneous
  Country: CN (occurrence: CN)
  Receive Date: 20200407
  Receipt Date: 20200407
  Transmission Date: 20200713
  Serious: Yes (Other)
  Sender: FDA-Public Use
  Company Number: CN-009507513-2004CHN001105

PATIENT
  Age: 87 Year
  Sex: Male

DRUGS (8)
  1. BUDESONIDE. [Concomitant]
     Active Substance: BUDESONIDE
     Indication: HERPES VIRUS INFECTION
  2. MEZLOCILLIN SODIUM (+) SULBACTAM SODIUM [Concomitant]
     Indication: INFECTION
     Dosage: 3.125 GRAM, Q8H
     Dates: start: 201807, end: 2018
  3. KANG FU XIN YE [Concomitant]
     Indication: EPIGLOTTITIS
     Dosage: UNK, FOR GARGLING
     Dates: start: 201807
  4. BUDESONIDE. [Concomitant]
     Active Substance: BUDESONIDE
     Indication: EPIGLOTTITIS
     Dosage: UNK, SPRAYING INHALATION
     Route: 055
     Dates: start: 201807
  5. KANG FU XIN YE [Concomitant]
     Indication: HERPES VIRUS INFECTION
  6. CETYLPYRIDINIUM CHLORIDE. [Concomitant]
     Active Substance: CETYLPYRIDINIUM CHLORIDE
     Indication: EPIGLOTTITIS
     Dosage: UNK, FOR GARGLING
     Dates: start: 201807
  7. CETYLPYRIDINIUM CHLORIDE. [Concomitant]
     Active Substance: CETYLPYRIDINIUM CHLORIDE
     Indication: HERPES VIRUS INFECTION
  8. ERTAPENEM SODIUM [Suspect]
     Active Substance: ERTAPENEM SODIUM
     Indication: INFECTION
     Dosage: 1 GRAM, QD
     Dates: start: 2018

REACTIONS (2)
  - Toxic epidermal necrolysis [Recovering/Resolving]
  - Drug ineffective [Unknown]

NARRATIVE: CASE EVENT DATE: 2018
